FAERS Safety Report 9536982 (Version 2)
Quarter: 2013Q4

REPORT INFORMATION
  Report Type: Spontaneous
  Country: BE (occurrence: BE)
  Receive Date: 20130919
  Receipt Date: 20131121
  Transmission Date: 20140711
  Serious: Yes (Other)
  Sender: FDA-Public Use
  Company Number: BE-SANOFI-AVENTIS-2013SA092059

PATIENT
  Age: 41 Year
  Sex: Male
  Weight: 57 kg

DRUGS (7)
  1. FABRAZYME [Suspect]
     Indication: FABRY^S DISEASE
     Route: 042
     Dates: start: 200901
  2. PRAVASTATINE [Concomitant]
     Indication: HYPERCHOLESTEROLAEMIA
     Route: 048
  3. RANITIDINE [Concomitant]
     Indication: PROPHYLAXIS
     Route: 048
  4. BISOPROLOL FUMARATE [Concomitant]
     Indication: HYPERTENSION
     Route: 048
  5. PROGRAFT [Concomitant]
     Indication: RENAL TRANSPLANT
     Route: 048
  6. MEDROL [Concomitant]
     Indication: RENAL TRANSPLANT
     Route: 048
  7. CELLCEPT [Concomitant]
     Indication: RENAL TRANSPLANT
     Route: 048

REACTIONS (3)
  - Aphasia [Unknown]
  - Atrial fibrillation [Unknown]
  - Ischaemic stroke [Recovered/Resolved with Sequelae]
